FAERS Safety Report 8900620 (Version 2)
Quarter: 2013Q1

REPORT INFORMATION
  Report Type: Report from Study
  Country: US (occurrence: US)
  Receive Date: 20121109
  Receipt Date: 20130131
  Transmission Date: 20140127
  Serious: Yes (Hospitalization)
  Sender: FDA-Public Use
  Company Number: US-UCBSA-069987

PATIENT
  Age: 51 Year
  Sex: Male
  Weight: 81.4 kg

DRUGS (15)
  1. CERTOLIZUMAB PEGOL [Suspect]
     Indication: SPONDYLITIS
     Dosage: SYRINGE
     Route: 058
     Dates: end: 2012
  2. CALCIUM CARBONATE, MAGNESIUM, ZINC, VITAMIN D3 [Concomitant]
     Route: 048
  3. GLUCOSAMINE HYDROCHLORIDE [Concomitant]
     Dosage: DAILY DOSE: 3000 MG
     Route: 048
  4. LIPITOR [Concomitant]
     Dosage: QHS
     Route: 048
  5. METOPROLOL TARTRATE [Concomitant]
     Dosage: DAILY DOSE: 50 MG
     Route: 048
  6. DICYCLOMINE HCL [Concomitant]
     Route: 048
  7. CARBATROL ER [Concomitant]
     Route: 048
  8. MSM [Concomitant]
     Dosage: DAILY DOSE: 1500 MG
     Route: 048
  9. NIACIN [Concomitant]
     Dosage: DAILY DOSE: 500 MG
     Route: 048
  10. OMEGA 3 FATTY ACIDS [Concomitant]
     Dosage: DAILY DOSE: 2000 MG
     Route: 048
  11. HYDROCODONE-ACETAMINOPHEN [Concomitant]
     Dosage: 1 TABLET Q4H PRN
     Route: 048
  12. PERCOCET [Concomitant]
  13. DESYREL [Concomitant]
     Dosage: QHS
     Route: 048
  14. RANITIDINE HCL [Concomitant]
     Route: 048
  15. CALCIUM CARBONATE, MAGNESIUM, ZINC, VITAMIN D3 [Concomitant]
     Route: 048

REACTIONS (2)
  - Pneumonia legionella [Recovering/Resolving]
  - Colitis [Recovering/Resolving]
